FAERS Safety Report 16853939 (Version 1)
Quarter: 2019Q3

REPORT INFORMATION
  Report Type: Spontaneous
  Country: US (occurrence: US)
  Receive Date: 20190802
  Receipt Date: 20190802
  Transmission Date: 20191005
  Serious: Yes (Hospitalization)
  Sender: FDA-Public Use
  Company Number: None

PATIENT
  Age: 63 Year
  Sex: Male

DRUGS (19)
  1. MULTIVITAMIN [Concomitant]
     Active Substance: VITAMINS
  2. AMLODIPINE [Concomitant]
     Active Substance: AMLODIPINE BESYLATE
  3. COENZYME Q10 [Concomitant]
     Active Substance: UBIDECARENONE
  4. METFORMIN [Concomitant]
     Active Substance: METFORMIN HYDROCHLORIDE
  5. ASPIRIN. [Concomitant]
     Active Substance: ASPIRIN
  6. METOPROLOL TARTRATE. [Concomitant]
     Active Substance: METOPROLOL TARTRATE
  7. SENNA [Concomitant]
     Active Substance: SENNA LEAF\SENNOSIDES\SENNOSIDES A AND B
  8. IVIG [Suspect]
     Active Substance: HUMAN IMMUNOGLOBULIN G
     Indication: PRODUCT USED FOR UNKNOWN INDICATION
     Route: 042
     Dates: start: 20180717, end: 20190114
  9. ASCORBIC ACID. [Concomitant]
     Active Substance: ASCORBIC ACID
  10. HEPARIN [Concomitant]
     Active Substance: HEPARIN SODIUM
  11. PREDNISONE. [Concomitant]
     Active Substance: PREDNISONE
  12. SODIUM CHLORIDE. [Concomitant]
     Active Substance: SODIUM CHLORIDE
  13. DOCUSATE [Concomitant]
     Active Substance: DOCUSATE
  14. LOSARTAN. [Concomitant]
     Active Substance: LOSARTAN
  15. SULFAMETHOXAZOLE/TRIMETHOPRIM [Concomitant]
     Active Substance: SULFAMETHOXAZOLE\TRIMETHOPRIM
  16. ERGOCALCIFEROL. [Concomitant]
     Active Substance: ERGOCALCIFEROL
  17. INSULIN ASPART [Concomitant]
     Active Substance: INSULIN ASPART
  18. RANITIDINE. [Concomitant]
     Active Substance: RANITIDINE
  19. FERROUS SULFATE. [Concomitant]
     Active Substance: FERROUS SULFATE

REACTIONS (6)
  - Vomiting [None]
  - Upper respiratory tract infection [None]
  - Chest discomfort [None]
  - Infusion related reaction [None]
  - Nausea [None]
  - Cough [None]

NARRATIVE: CASE EVENT DATE: 20190114
